FAERS Safety Report 5700259-4 (Version None)
Quarter: 2008Q2

REPORT INFORMATION
  Report Type: 
  Country: None (occurrence: None)
  Receive Date: 20080408
  Receipt Date: 20080408
  Transmission Date: 20081010
  Serious: No
  Sender: FDA-Public Use
  Company Number: None

PATIENT
  Age: 62 Year
  Sex: Female
  Weight: 63.5036 kg

DRUGS (1)
  1. ZICAM NIGHTTIME LIQUID 8 OUNCES -ZICAM - MATTRIX INIATIVES [Suspect]
     Indication: NASOPHARYNGITIS
     Dosage: 2 TBSP EVERY 4 HOURS PO
     Route: 048
     Dates: start: 20080402, end: 20080403

REACTIONS (3)
  - AGEUSIA [None]
  - ANOSMIA [None]
  - PHARMACEUTICAL PRODUCT COMPLAINT [None]
